FAERS Safety Report 7211312-0 (Version None)
Quarter: 2011Q1

REPORT INFORMATION
  Report Type: 
  Country: None (occurrence: None)
  Receive Date: 20110105
  Receipt Date: 20110103
  Transmission Date: 20110831
  Serious: Yes (Death, Other)
  Sender: FDA-Public Use
  Company Number: DE-CEPHALON-2011000037

PATIENT
  Age: 63 Year
  Sex: Female

DRUGS (3)
  1. DEXAMETHASONE [Concomitant]
     Dates: start: 20051109, end: 20051115
  2. ARA-C [Concomitant]
     Dates: start: 20051114, end: 20051115
  3. TRISENOX [Suspect]
     Route: 041
     Dates: start: 20051028, end: 20051113

REACTIONS (2)
  - CEREBRAL HAEMORRHAGE [None]
  - LEUKOCYTOSIS [None]
